FAERS Safety Report 11588502 (Version 1)
Quarter: 2015Q4

REPORT INFORMATION
  Report Type: Spontaneous
  Country: US (occurrence: None)
  Receive Date: 20151001
  Receipt Date: 20151001
  Transmission Date: 20160304
  Serious: Yes (Disabling)
  Sender: FDA-Public Use
  Company Number: None

PATIENT
  Age: 31 Year
  Sex: Female
  Weight: 58.97 kg

DRUGS (3)
  1. MANESIUM SUPPLEMENTS [Concomitant]
  2. CALCIUM SUPPLEMENTS [Concomitant]
     Active Substance: CALCIUM
  3. CIPROFLOXACIN. [Suspect]
     Active Substance: CIPROFLOXACIN
     Indication: URINARY TRACT INFECTION
     Dates: start: 20150901, end: 20150909

REACTIONS (5)
  - Muscle spasms [None]
  - Muscular weakness [None]
  - Documented hypersensitivity to administered product [None]
  - Arthritis [None]
  - Myalgia [None]

NARRATIVE: CASE EVENT DATE: 20150909
